FAERS Safety Report 7123874-2 (Version None)
Quarter: 2010Q4

REPORT INFORMATION
  Report Type: 
  Country: None (occurrence: None)
  Receive Date: 20101125
  Receipt Date: 20101119
  Transmission Date: 20110411
  Serious: Yes (Life-Threatening, Hospitalization)
  Sender: FDA-Public Use
  Company Number: US-ELI_LILLY_AND_COMPANY-US200910007416

PATIENT
  Sex: Male
  Weight: 68.6 kg

DRUGS (2)
  1. GEMCITABINE HCL [Suspect]
     Indication: DIFFUSE LARGE B-CELL LYMPHOMA
     Dosage: 400 MG/M2, OTHER
     Route: 042
     Dates: start: 20091006
  2. OTHER PHARMA COMPANY INV DRUG [Suspect]
     Indication: DIFFUSE LARGE B-CELL LYMPHOMA
     Dosage: 10 MG/M2, OTHER
     Route: 042
     Dates: start: 20091005

REACTIONS (4)
  - HAEMOGLOBIN [None]
  - HYPOTENSION [None]
  - MUSCULAR WEAKNESS [None]
  - SEPSIS SYNDROME [None]
